FAERS Safety Report 11016581 (Version 2)
Quarter: 2015Q2

REPORT INFORMATION
  Report Type: Spontaneous
  Country: US (occurrence: US)
  Receive Date: 20150412
  Receipt Date: 20150525
  Transmission Date: 20150821
  Serious: No
  Sender: FDA-Public Use
  Company Number: US-JNJFOC-20131217790

PATIENT
  Age: 68 Year
  Sex: Male
  Weight: 74.84 kg

DRUGS (4)
  1. STELARA [Concomitant]
     Active Substance: USTEKINUMAB
     Route: 065
     Dates: start: 2013
  2. SODIUM HYALURONATE [Concomitant]
     Active Substance: HYALURONATE SODIUM
     Indication: OSTEOARTHRITIS
     Route: 065
     Dates: start: 2013
  3. SIMPONI [Suspect]
     Active Substance: GOLIMUMAB
     Indication: AUTOIMMUNE DISORDER
     Route: 058
     Dates: start: 20140127
  4. SIMPONI [Suspect]
     Active Substance: GOLIMUMAB
     Indication: AUTOIMMUNE DISORDER
     Route: 058
     Dates: start: 2011

REACTIONS (4)
  - Arthralgia [Recovering/Resolving]
  - Incorrect product storage [Unknown]
  - Joint stiffness [Recovering/Resolving]
  - Joint swelling [Recovering/Resolving]

NARRATIVE: CASE EVENT DATE: 20131105
